FAERS Safety Report 6186947-7 (Version None)
Quarter: 2009Q2

REPORT INFORMATION
  Report Type: 
  Country: None (occurrence: None)
  Receive Date: 20090508
  Receipt Date: 20090508
  Transmission Date: 20091009
  Serious: Yes (Life-Threatening)
  Sender: FDA-Public Use
  Company Number: None

PATIENT
  Age: 66 Year
  Sex: Male
  Weight: 86.1834 kg

DRUGS (2)
  1. HYZAAR [Suspect]
     Indication: OROPHARYNGEAL SWELLING
     Dosage: 1 DAILY DAILY PO
     Route: 048
     Dates: start: 20040301, end: 20090320
  2. HYZAAR [Suspect]
     Indication: TONGUE OEDEMA
     Dosage: 1 DAILY DAILY PO
     Route: 048
     Dates: start: 20040301, end: 20090320

REACTIONS (2)
  - SPEECH DISORDER [None]
  - TONGUE OEDEMA [None]
